FAERS Safety Report 12592744 (Version 1)
Quarter: 2016Q3

REPORT INFORMATION
  Report Type: Spontaneous
  Country: JP (occurrence: JP)
  Receive Date: 20160726
  Receipt Date: 20160726
  Transmission Date: 20161109
  Serious: Yes (Other)
  Sender: FDA-Public Use
  Company Number: JP-JNJFOC-20160718846

PATIENT

DRUGS (8)
  1. REMICADE [Suspect]
     Active Substance: INFLIXIMAB
     Indication: ERYTHRODERMIC PSORIASIS
     Route: 042
  2. REMICADE [Suspect]
     Active Substance: INFLIXIMAB
     Indication: ERYTHRODERMIC PSORIASIS
     Dosage: AT WEEKS 0, 2 AND 6, AND EVERY 8 WEEKS THEREAFTER
     Route: 042
  3. REMICADE [Suspect]
     Active Substance: INFLIXIMAB
     Indication: PUSTULAR PSORIASIS
     Route: 042
  4. REMICADE [Suspect]
     Active Substance: INFLIXIMAB
     Indication: PSORIATIC ARTHROPATHY
     Dosage: AT WEEKS 0, 2 AND 6, AND EVERY 8 WEEKS THEREAFTER
     Route: 042
  5. REMICADE [Suspect]
     Active Substance: INFLIXIMAB
     Indication: PUSTULAR PSORIASIS
     Dosage: AT WEEKS 0, 2 AND 6, AND EVERY 8 WEEKS THEREAFTER
     Route: 042
  6. REMICADE [Suspect]
     Active Substance: INFLIXIMAB
     Indication: PSORIASIS
     Dosage: AT WEEKS 0, 2 AND 6, AND EVERY 8 WEEKS THEREAFTER
     Route: 042
  7. REMICADE [Suspect]
     Active Substance: INFLIXIMAB
     Indication: PSORIATIC ARTHROPATHY
     Route: 042
  8. REMICADE [Suspect]
     Active Substance: INFLIXIMAB
     Indication: PSORIASIS
     Route: 042

REACTIONS (34)
  - Pneumonia [Unknown]
  - Cellulitis [Unknown]
  - Herpes zoster [Unknown]
  - Drug effect decreased [Unknown]
  - Eye disorder [Unknown]
  - Interstitial lung disease [Unknown]
  - Musculoskeletal disorder [Unknown]
  - General symptom [Unknown]
  - Cardiac disorder [Unknown]
  - Metabolic disorder [Unknown]
  - Reproductive tract disorder [Unknown]
  - Infusion related reaction [Unknown]
  - Cytopenia [Unknown]
  - Pneumocystis jirovecii pneumonia [Unknown]
  - Lupus-like syndrome [Unknown]
  - Ear disorder [Unknown]
  - Lymphatic disorder [Unknown]
  - Infection [Unknown]
  - Respiratory disorder [Unknown]
  - Investigation [Unknown]
  - Mental disorder [Unknown]
  - Cytomegalovirus infection [Unknown]
  - Procedural complication [Unknown]
  - Infestation [Unknown]
  - Angiopathy [Unknown]
  - Injury [Unknown]
  - Poisoning [Unknown]
  - Blood disorder [Unknown]
  - Hepatobiliary disease [Unknown]
  - Neoplasm malignant [Unknown]
  - Gastrointestinal disorder [Unknown]
  - Immune system disorder [Unknown]
  - Nervous system disorder [Unknown]
  - Skin disorder [Unknown]
